FAERS Safety Report 12435555 (Version 1)
Quarter: 2016Q2

REPORT INFORMATION
  Report Type: Spontaneous
  Country: US (occurrence: US)
  Receive Date: 20160603
  Receipt Date: 20160603
  Transmission Date: 20160815
  Serious: No
  Sender: FDA-Public Use
  Company Number: US-ROCHE-1682699

PATIENT
  Age: 55 Year
  Sex: Female

DRUGS (2)
  1. KLONOPIN [Suspect]
     Active Substance: CLONAZEPAM
     Indication: STRESS
     Route: 065
  2. XANAX [Concomitant]
     Active Substance: ALPRAZOLAM

REACTIONS (6)
  - Depression [Unknown]
  - Malaise [Unknown]
  - Alopecia [Unknown]
  - Weight increased [Unknown]
  - Pain [Unknown]
  - Visual impairment [Unknown]
